FAERS Safety Report 5938099-3 (Version None)
Quarter: 2008Q4

REPORT INFORMATION
  Report Type: 
  Country: None (occurrence: None)
  Receive Date: 20081031
  Receipt Date: 20081027
  Transmission Date: 20090506
  Serious: Yes (Death, Life-Threatening, Hospitalization, Other)
  Sender: FDA-Public Use
  Company Number: PHBS2008TH06129

PATIENT
  Age: 39 Year
  Sex: Female

DRUGS (4)
  1. CYCLOSPORINE [Suspect]
     Indication: LUNG TRANSPLANT
  2. MYCOPHENOLATE MOFETIL [Suspect]
     Indication: LUNG TRANSPLANT
  3. PREDNISOLONE [Suspect]
     Indication: LUNG TRANSPLANT
  4. RAPAMYCIN [Suspect]
     Indication: LUNG TRANSPLANT

REACTIONS (12)
  - ATELECTASIS [None]
  - CARDIAC ARREST [None]
  - CEREBRAL ISCHAEMIA [None]
  - DIAPHRAGMATIC DISORDER [None]
  - HAEMOPTYSIS [None]
  - LUNG INFECTION [None]
  - LUNG TRANSPLANT [None]
  - OBLITERATIVE BRONCHIOLITIS [None]
  - OXYGEN SATURATION DECREASED [None]
  - RESPIRATORY TRACT INFECTION [None]
  - SPIROMETRY ABNORMAL [None]
  - SURGERY [None]
